FAERS Safety Report 21467560 (Version 1)
Quarter: 2022Q4

REPORT INFORMATION
  Report Type: Report from Study
  Country: US (occurrence: US)
  Receive Date: 20221017
  Receipt Date: 20221017
  Transmission Date: 20230113
  Serious: No
  Sender: FDA-Public Use
  Company Number: US-ABBVIE-4154217

PATIENT

DRUGS (2)
  1. HUMIRA [Suspect]
     Active Substance: ADALIMUMAB
     Indication: Hidradenitis
     Route: 058
  2. Pfizer/BioNtech  COVID -19 VACCINE [Concomitant]
     Indication: COVID-19 immunisation

REACTIONS (3)
  - Drug ineffective [Unknown]
  - Ear infection [Unknown]
  - Upper respiratory tract infection [Unknown]
